FAERS Safety Report 4870382-5 (Version None)
Quarter: 2005Q4

REPORT INFORMATION
  Report Type: 
  Country: None (occurrence: None)
  Receive Date: 20051228
  Receipt Date: 20051214
  Transmission Date: 20060501
  Serious: Yes (Hospitalization)
  Sender: FDA-Public Use
  Company Number: US200512002486

PATIENT
  Sex: Female
  Weight: 68.5 kg

DRUGS (3)
  1. CYMBALTA [Suspect]
     Dosage: 60 MG, DAILY (1/D), ORAL
     Route: 048
     Dates: start: 20051001, end: 20051109
  2. WELLBUTRIN [Concomitant]
  3. BENADRYL ^WARNER-LAMBERT^ /USA/(DIPHENHYDRAMINE HYDROCHLORIDE) [Concomitant]

REACTIONS (17)
  - ANHEDONIA [None]
  - ANXIETY [None]
  - CONVULSION [None]
  - DECREASED APPETITE [None]
  - DISTURBANCE IN ATTENTION [None]
  - DRUG EFFECT DECREASED [None]
  - DRUG INTERACTION [None]
  - DRUG SCREEN POSITIVE [None]
  - DYSPEPSIA [None]
  - FATIGUE [None]
  - IRRITABILITY [None]
  - MENTAL STATUS CHANGES [None]
  - NERVOUSNESS [None]
  - PANIC REACTION [None]
  - TEARFULNESS [None]
  - TREATMENT NONCOMPLIANCE [None]
  - WEIGHT DECREASED [None]
